FAERS Safety Report 21392193 (Version 1)
Quarter: 2022Q3

REPORT INFORMATION
  Report Type: Spontaneous
  Country: JP (occurrence: JP)
  Receive Date: 20220929
  Receipt Date: 20220929
  Transmission Date: 20221026
  Serious: Yes (Other)
  Sender: FDA-Public Use
  Company Number: JP-TAKEDA-2022TJP074181

PATIENT
  Age: 63 Year
  Sex: Male

DRUGS (1)
  1. ADCETRIS [Suspect]
     Active Substance: BRENTUXIMAB VEDOTIN
     Indication: Anaplastic large-cell lymphoma
     Dosage: UNK UNK, Q3WEEKS
     Route: 041

REACTIONS (3)
  - Herpes zoster meningoencephalitis [Recovered/Resolved]
  - Hypoaesthesia [Unknown]
  - Rash [Recovered/Resolved]
